FAERS Safety Report 14015842 (Version 4)
Quarter: 2017Q4

REPORT INFORMATION
  Report Type: Spontaneous
  Country: US (occurrence: US)
  Receive Date: 20170927
  Receipt Date: 20171121
  Transmission Date: 20180321
  Serious: Yes (Death, Hospitalization, Other)
  Sender: FDA-Public Use
  Company Number: US-ACTELION-A-US2017-160005

PATIENT
  Age: 65 Year
  Sex: Male

DRUGS (8)
  1. UPTRAVI [Suspect]
     Active Substance: SELEXIPAG
     Dosage: 200 MCG, BID
     Route: 048
  2. TYVASO [Suspect]
     Active Substance: TREPROSTINIL
     Dosage: 0.6 MG, UNK
     Route: 065
  3. UPTRAVI [Suspect]
     Active Substance: SELEXIPAG
     Indication: PULMONARY HYPERTENSION
     Dosage: UNK
     Route: 048
  4. AMBRISENTAN [Suspect]
     Active Substance: AMBRISENTAN
     Indication: PULMONARY HYPERTENSION
     Dosage: 10 MG, QD
     Route: 065
     Dates: start: 20160906, end: 20171102
  5. TYVASO [Suspect]
     Active Substance: TREPROSTINIL
     Dosage: 54 MCG, QD
     Route: 065
  6. ADEMPAS [Suspect]
     Active Substance: RIOCIGUAT
     Indication: PRODUCT USED FOR UNKNOWN INDICATION
     Dosage: 2 MG, TID
     Route: 065
  7. TYVASO [Suspect]
     Active Substance: TREPROSTINIL
     Indication: PRODUCT USED FOR UNKNOWN INDICATION
     Dosage: 22 NG/KG, PER MIN
     Route: 065
     Dates: start: 201702
  8. ADEMPAS [Suspect]
     Active Substance: RIOCIGUAT
     Dosage: 2 MG, UNK
     Route: 065

REACTIONS (2)
  - Dyspnoea [Unknown]
  - Death [Fatal]

NARRATIVE: CASE EVENT DATE: 20171102
